FAERS Safety Report 11572569 (Version 2)
Quarter: 2015Q4

REPORT INFORMATION
  Report Type: Spontaneous
  Country: US (occurrence: US)
  Receive Date: 20150916
  Receipt Date: 20151027
  Transmission Date: 20160304
  Serious: No
  Sender: FDA-Public Use
  Company Number: US-ELI_LILLY_AND_COMPANY-US200910003221

PATIENT
  Age: 66 Year
  Sex: Female

DRUGS (2)
  1. OSCAL [Concomitant]
     Active Substance: CALCIUM CARBONATE
     Dosage: UNK, DAILY (1/D)
     Dates: start: 1969
  2. FORTEO [Suspect]
     Active Substance: TERIPARATIDE
     Indication: OSTEOPOROSIS
     Dosage: 20 UG, DAILY (1/D)
     Dates: start: 20090501, end: 20090921

REACTIONS (6)
  - Blood parathyroid hormone decreased [Unknown]
  - Feeling abnormal [Unknown]
  - Aphasia [Unknown]
  - Bradyphrenia [Unknown]
  - Thinking abnormal [Unknown]
  - Blood calcium increased [Recovered/Resolved]

NARRATIVE: CASE EVENT DATE: 200909
